FAERS Safety Report 4815822-2 (Version None)
Quarter: 2005Q4

REPORT INFORMATION
  Report Type: 
  Country: None (occurrence: None)
  Receive Date: 20051027
  Receipt Date: 20051011
  Transmission Date: 20060501
  Serious: Yes (Hospitalization)
  Sender: FDA-Public Use
  Company Number: DSA_27168_2005

PATIENT
  Age: 51 Year
  Sex: Female

DRUGS (2)
  1. TAVOR [Suspect]
     Dosage: 8 MG ONCE PO
     Route: 048
     Dates: start: 20050920, end: 20050920
  2. AMITRIPTYLINE HCL [Suspect]
     Dates: start: 20050920, end: 20050920

REACTIONS (3)
  - MULTIPLE DRUG OVERDOSE INTENTIONAL [None]
  - SINUS TACHYCARDIA [None]
  - SOMNOLENCE [None]
